FAERS Safety Report 9997815 (Version 1)
Quarter: 2014Q1

REPORT INFORMATION
  Report Type: Spontaneous
  Country: US (occurrence: None)
  Receive Date: 20140225
  Receipt Date: 20140225
  Transmission Date: 20141002
  Serious: Yes (Hospitalization, Other)
  Sender: FDA-Public Use
  Company Number: 2013-US-002747

PATIENT
  Age: 34 Year
  Sex: Male

DRUGS (1)
  1. PRIALT (ZICONOTIDE ACETATE) INTRATHECAL INFUSION, UG/ML [Suspect]
     Indication: SPINAL PAIN
     Dosage: UG, QH, INTRATHECAL
     Route: 037

REACTIONS (1)
  - Suicide attempt [None]
